FAERS Safety Report 9108241 (Version 1)
Quarter: 2013Q1

REPORT INFORMATION
  Report Type: Spontaneous
  Country: JP (occurrence: JP)
  Receive Date: 20130222
  Receipt Date: 20130222
  Transmission Date: 20140127
  Serious: Yes (Life-Threatening, Other)
  Sender: FDA-Public Use
  Company Number: JP-ROCHE-1186241

PATIENT
  Age: 1 Year
  Sex: Male
  Weight: 11 kg

DRUGS (2)
  1. TAMIFLU [Suspect]
     Indication: INFLUENZA
     Dosage: DOSAGE IS UNCERTAIN.
     Route: 048
  2. TAMIFLU [Suspect]
     Route: 048
     Dates: start: 20130118

REACTIONS (6)
  - Dyspnoea [Recovered/Resolved]
  - Encephalopathy [Unknown]
  - Mental disorder [Recovered/Resolved]
  - Dyskinesia [Unknown]
  - Asthenia [Unknown]
  - Vomiting [Unknown]
